FAERS Safety Report 6053153-6 (Version None)
Quarter: 2009Q1

REPORT INFORMATION
  Report Type: 
  Country: None (occurrence: None)
  Receive Date: 20090127
  Receipt Date: 20090119
  Transmission Date: 20090719
  Serious: Yes (Other)
  Sender: FDA-Public Use
  Company Number: US-ABBOTT-09P-163-0498710-00

PATIENT
  Sex: Female
  Weight: 56.75 kg

DRUGS (15)
  1. HUMIRA [Suspect]
     Indication: LEUKOCYTE ANTIGEN B-27 POSITIVE
     Route: 058
     Dates: start: 20081001, end: 20090114
  2. HUMIRA [Suspect]
     Dosage: HALF DOSE
     Route: 058
     Dates: start: 20090114, end: 20090114
  3. PREDNISONE [Concomitant]
     Indication: LEUKOCYTE ANTIGEN B-27 POSITIVE
  4. TOPROL-XL [Concomitant]
     Indication: LEUKOCYTE ANTIGEN B-27 POSITIVE
  5. POTASSIUM CHLORIDE [Concomitant]
     Indication: LEUKOCYTE ANTIGEN B-27 POSITIVE
  6. LASIX [Concomitant]
     Indication: LEUKOCYTE ANTIGEN B-27 POSITIVE
  7. FERROUS SULFATE TAB [Concomitant]
     Indication: MARFAN'S SYNDROME
  8. VITAMIN B AND D-COMBINATION [Concomitant]
     Indication: PSORIATIC ARTHROPATHY
     Dosage: UNKNOWN
     Dates: start: 20081001
  9. ACADIAN [Concomitant]
     Indication: LEUKOCYTE ANTIGEN B-27 POSITIVE
  10. METHOTREXATE [Concomitant]
     Indication: LEUKOCYTE ANTIGEN B-27 POSITIVE
     Dates: start: 20080101, end: 20081229
  11. METHOTREXATE [Concomitant]
     Dosage: HALF OF A 25MG TABLET
     Dates: start: 20081229
  12. DIAZEPAM [Concomitant]
     Indication: STRESS
  13. HALCION [Concomitant]
     Indication: STRESS
  14. IMITREX [Concomitant]
     Indication: MIGRAINE
     Dosage: AS NEEDED
  15. MORPHINE SULFATE [Concomitant]
     Indication: BREAKTHROUGH PAIN
     Dosage: AS NEEDED

REACTIONS (3)
  - ALOPECIA [None]
  - BRONCHITIS [None]
  - CARPAL TUNNEL SYNDROME [None]
